FAERS Safety Report 8847979 (Version 1)
Quarter: 2012Q4

REPORT INFORMATION
  Report Type: 
  Country: US (occurrence: US)
  Receive Date: 20121018
  Receipt Date: 20121018
  Transmission Date: 20130627
  Serious: Yes (Other)
  Sender: FDA-Public Use
  Company Number: US-PERRIGO-12US008829

PATIENT
  Age: 69 Year
  Sex: Male
  Weight: 68.93 kg

DRUGS (8)
  1. OXYMETAZOLINE HYDROCHLORIDE [Suspect]
     Indication: NASAL CONGESTION
     Dosage: 1 to 2 sprays in each nostril, every 12 hours
     Route: 045
     Dates: start: 20120909, end: 20120930
  2. OXYMETAZOLINE HYDROCHLORIDE [Suspect]
     Dosage: 1 to 2 sprays in each nostril, 3 times daily
     Route: 045
     Dates: start: 20121001, end: 20121007
  3. FLUNISOLIDE [Suspect]
     Indication: SEASONAL ALLERGY
     Dosage: UNK
     Route: 045
     Dates: end: 20121008
  4. FLUNISOLIDE [Suspect]
     Indication: SNEEZING
  5. LISINOPRIL [Concomitant]
     Indication: HYPERTENSION
     Dosage: 15 mg, qd
     Route: 048
     Dates: start: 2007
  6. THEOPHYLLINE [Concomitant]
     Indication: ASTHMA
     Dosage: 300 mg, UNK
     Route: 048
     Dates: start: 2007
  7. GLIPIZIDE [Concomitant]
     Indication: TYPE 2 DIABETES MELLITUS
     Dosage: 10 mg, bid
     Route: 048
     Dates: start: 2007
  8. METFORMIN [Concomitant]
     Indication: TYPE 2 DIABETES MELLITUS
     Dosage: 850 mg, bid
     Route: 048
     Dates: start: 2007

REACTIONS (12)
  - Dysarthria [Recovering/Resolving]
  - Impaired driving ability [Recovering/Resolving]
  - Mental impairment [Recovering/Resolving]
  - Somnolence [Recovered/Resolved]
  - Epistaxis [Recovered/Resolved]
  - Headache [Recovered/Resolved]
  - Application site pain [Recovered/Resolved]
  - Pruritus generalised [Recovered/Resolved]
  - Hangover [Recovering/Resolving]
  - Incorrect drug administration duration [Recovered/Resolved]
  - Incorrect dose administered [Recovered/Resolved]
  - Disorientation [Not Recovered/Not Resolved]
